FAERS Safety Report 6620484-8 (Version None)
Quarter: 2010Q1

REPORT INFORMATION
  Report Type: 
  Country: None (occurrence: None)
  Receive Date: 20100309
  Receipt Date: 20100302
  Transmission Date: 20100710
  Serious: Yes (Hospitalization)
  Sender: FDA-Public Use
  Company Number: US-BRISTOL-MYERS SQUIBB COMPANY-14999163

PATIENT
  Age: 75 Year
  Sex: Female
  Weight: 63 kg

DRUGS (8)
  1. COUMADIN [Suspect]
     Dosage: DOSAGE:6MG ON SUNDAYS.
     Dates: start: 20040601
  2. NEXIUM [Concomitant]
  3. LIPITOR [Concomitant]
  4. BABY ASPIRIN [Concomitant]
  5. LYRICA [Concomitant]
     Dosage: DOSAGE:STARTED 2 WEEKS AGO.
  6. TOPROL-XL [Concomitant]
  7. ZYRTEC [Concomitant]
  8. VITAMIN D [Concomitant]
     Dosage: DOSAGE:FOR 3 MONTHS.

REACTIONS (2)
  - SINUSITIS [None]
  - TRANSIENT ISCHAEMIC ATTACK [None]
